FAERS Safety Report 8491877-1 (Version None)
Quarter: 2012Q3

REPORT INFORMATION
  Report Type: 
  Country: None (occurrence: None)
  Receive Date: 20120706
  Receipt Date: 20110921
  Transmission Date: 20120928
  Serious: No
  Sender: FDA-Public Use
  Company Number: US-GLAXOSMITHKLINE-A0945476A

PATIENT
  Age: 83 Year
  Sex: Female

DRUGS (4)
  1. LEVOTHROID [Concomitant]
  2. SINGULAIR [Concomitant]
  3. AMLODIPINE BESYLATE [Concomitant]
  4. FLOVENT [Suspect]
     Indication: ASTHMA
     Dosage: 2PUFF TWICE PER DAY
     Route: 055
     Dates: end: 20110919

REACTIONS (3)
  - PRODUCTIVE COUGH [None]
  - COUGH [None]
  - DRUG INEFFECTIVE [None]
